FAERS Safety Report 9949258 (Version 1)
Quarter: 2014Q1

REPORT INFORMATION
  Report Type: Spontaneous
  Country: DE (occurrence: DE)
  Receive Date: 20140304
  Receipt Date: 20140304
  Transmission Date: 20141002
  Serious: Yes (Hospitalization, Other)
  Sender: FDA-Public Use
  Company Number: DE-SHIRE-DE201400070

PATIENT
  Sex: 0

DRUGS (7)
  1. MEZAVANT [Suspect]
     Indication: COLITIS ULCERATIVE
     Dosage: 2400 MG, 2X/DAY:BID
     Route: 065
     Dates: start: 2013
  2. MEZAVANT [Suspect]
     Dosage: UNK, UNKNOWN
     Route: 048
     Dates: start: 2010
  3. URSOFALK [Concomitant]
     Indication: PRODUCT USED FOR UNKNOWN INDICATION
     Dosage: 500 MG, 2X/DAY:BID
     Route: 065
  4. ALLOPURINOL [Concomitant]
     Indication: PRODUCT USED FOR UNKNOWN INDICATION
     Dosage: UNK UNK, 1X/DAY:QD
     Route: 065
  5. BELOC                              /00376903/ [Concomitant]
     Indication: BLOOD PRESSURE ABNORMAL
     Dosage: 47.5 MG, UNKNOWN
     Route: 065
  6. ISOZID [Concomitant]
     Indication: PRODUCT USED FOR UNKNOWN INDICATION
     Dosage: 300 MG, UNKNOWN
     Route: 065
  7. RIFAMPICIN [Concomitant]
     Indication: PRODUCT USED FOR UNKNOWN INDICATION
     Dosage: 600 MG, UNKNOWN
     Route: 065

REACTIONS (3)
  - Tuberculosis [Not Recovered/Not Resolved]
  - Diarrhoea [Not Recovered/Not Resolved]
  - Drug ineffective [Not Recovered/Not Resolved]
